FAERS Safety Report 15143166 (Version 1)
Quarter: 2018Q3

REPORT INFORMATION
  Report Type: Spontaneous
  Country: US (occurrence: US)
  Receive Date: 20180713
  Receipt Date: 20180713
  Transmission Date: 20181010
  Serious: No
  Sender: FDA-Public Use
  Company Number: US-SAREPTA THERAPEUTICS, INC-SRP-000102-2018

PATIENT
  Age: 6 Year
  Sex: Male
  Weight: 28.6 kg

DRUGS (2)
  1. EXONDYS 51 [Suspect]
     Active Substance: ETEPLIRSEN
     Dosage: 16 ML, WEEKLY (2 ML VIALS 8 TIMES)
     Route: 065
     Dates: start: 20170920
  2. EXONDYS 51 [Suspect]
     Active Substance: ETEPLIRSEN
     Indication: DUCHENNE MUSCULAR DYSTROPHY
     Dosage: 768 MG, WEEKLY
     Route: 042
     Dates: start: 201708

REACTIONS (3)
  - Abdominal pain upper [Recovered/Resolved]
  - Cough [Recovered/Resolved]
  - Rash [Recovered/Resolved]

NARRATIVE: CASE EVENT DATE: 20180607
